FAERS Safety Report 5920054-0 (Version None)
Quarter: 2008Q4

REPORT INFORMATION
  Report Type: 
  Country: None (occurrence: None)
  Receive Date: 20081014
  Receipt Date: 20080926
  Transmission Date: 20090506
  Serious: Yes (Death)
  Sender: FDA-Public Use
  Company Number: 08-217

PATIENT
  Sex: Male

DRUGS (4)
  1. FAZACLO ODT [Suspect]
     Dosage: 900 MG DAILY PO
     Route: 048
     Dates: start: 20080708, end: 20080724
  2. DEPAKOTE [Concomitant]
  3. HALDOL [Concomitant]
  4. COGENTIN [Concomitant]

REACTIONS (1)
  - DEATH [None]
